FAERS Safety Report 19867071 (Version 1)
Quarter: 2021Q3

REPORT INFORMATION
  Report Type: Spontaneous
  Country: US (occurrence: US)
  Receive Date: 20210921
  Receipt Date: 20210921
  Transmission Date: 20211014
  Serious: No
  Sender: FDA-Public Use
  Company Number: US-BRAINTREE LABORATORIES, INC.-2021BTE00348

PATIENT
  Age: 79 Year
  Sex: Male
  Weight: 92.97 kg

DRUGS (6)
  1. GENERIC CRESTOR [Concomitant]
     Active Substance: ROSUVASTATIN CALCIUM
     Dosage: 5 MG, EVERY 72 HOURS (EVERY 3 DAYS)
  2. TIMOLOL. [Concomitant]
     Active Substance: TIMOLOL
     Dosage: UNK, 1X/DAY IN THE MORNING
  3. COQ [Concomitant]
     Dosage: UNK, EVERY 72 HOURS (EVERY 3 DAYS WITH ^GENERIC CRESTOR^)
  4. SUPREP BOWEL PREP [Suspect]
     Active Substance: MAGNESIUM SULFATE\POTASSIUM SULFATE\SODIUM SULFATE
     Indication: COLONOSCOPY
     Dosage: 2 X 6 OZ. BOTTLE, 1X
     Route: 048
     Dates: start: 20210429, end: 20210429
  5. LATANOPROST. [Concomitant]
     Active Substance: LATANOPROST
     Dosage: UNK, 1X/DAY AT NIGHT
  6. SUPREP BOWEL PREP [Suspect]
     Active Substance: MAGNESIUM SULFATE\POTASSIUM SULFATE\SODIUM SULFATE
     Indication: ENDOSCOPY

REACTIONS (1)
  - Diarrhoea [Recovering/Resolving]

NARRATIVE: CASE EVENT DATE: 20210505
